FAERS Safety Report 8430804-X (Version None)
Quarter: 2012Q2

REPORT INFORMATION
  Report Type: 
  Country: None (occurrence: None)
  Receive Date: 20120612
  Receipt Date: 20120601
  Transmission Date: 20120825
  Serious: Yes (Other)
  Sender: FDA-Public Use
  Company Number: GB-ROCHE-1076023

PATIENT
  Age: 81 Year
  Sex: Female

DRUGS (3)
  1. LEFLUNOMIDE [Concomitant]
  2. METHOTREXATE [Concomitant]
  3. RITUXIMAB [Suspect]
     Indication: RHEUMATOID ARTHRITIS
     Dates: start: 20100301

REACTIONS (6)
  - DIZZINESS [None]
  - PNEUMONIA [None]
  - FEELING ABNORMAL [None]
  - MALAISE [None]
  - BLOOD CHOLESTEROL ABNORMAL [None]
  - BLOOD TRIGLYCERIDES ABNORMAL [None]
